FAERS Safety Report 10247924 (Version 1)
Quarter: 2014Q2

REPORT INFORMATION
  Report Type: Spontaneous
  Country: FR (occurrence: FR)
  Receive Date: 20140619
  Receipt Date: 20140619
  Transmission Date: 20141212
  Serious: Yes (Death)
  Sender: FDA-Public Use
  Company Number: FR-BAXTER-2014BAX032800

PATIENT
  Sex: Female

DRUGS (7)
  1. ENDOXAN 1000 MG, POUDRE POUR SOLUTION INJECTABLE [Suspect]
     Indication: INVASIVE DUCTAL BREAST CARCINOMA
     Route: 065
     Dates: start: 201006
  2. CARBOPLATIN [Suspect]
     Indication: METASTASES TO LIVER
     Route: 065
  3. CARBOPLATIN [Suspect]
     Indication: METASTASES TO CENTRAL NERVOUS SYSTEM
  4. TRASTUZUMAB [Suspect]
     Indication: METASTASES TO LIVER
     Route: 065
  5. TRASTUZUMAB [Suspect]
     Indication: METASTASES TO CENTRAL NERVOUS SYSTEM
  6. METHOTREXATE [Suspect]
     Indication: METASTASES TO LIVER
     Route: 065
  7. METHOTREXATE [Suspect]
     Indication: METASTASES TO CENTRAL NERVOUS SYSTEM

REACTIONS (1)
  - Death [Fatal]
